FAERS Safety Report 12021734 (Version 2)
Quarter: 2016Q4

REPORT INFORMATION
  Report Type: Report from Study
  Country: None (occurrence: US)
  Receive Date: 20160206
  Receipt Date: 20161014
  Transmission Date: 20170206
  Serious: Yes (Hospitalization, Disabling, Other)
  Sender: FDA-Public Use
  Company Number: US-ABBVIE-15K-163-1472082-00

PATIENT
  Age: 58 Year
  Sex: Male
  Weight: 71.73 kg

DRUGS (10)
  1. HUMIRA [Suspect]
     Active Substance: ADALIMUMAB
     Indication: CROHN^S DISEASE
     Route: 058
     Dates: start: 20150115, end: 20150115
  2. PREDNISONE. [Suspect]
     Active Substance: PREDNISONE
     Dosage: FROM 25-40 MG DAILY, CURRENTLY 35 MG DAILY
     Route: 065
  3. HUMIRA [Suspect]
     Active Substance: ADALIMUMAB
     Dosage: TWO WEEKS AFTER 160 MG DOSE
     Route: 058
     Dates: start: 201501, end: 201501
  4. HUMIRA [Suspect]
     Active Substance: ADALIMUMAB
     Dosage: FOUR WEEKS AFTER 160 MG DOSE
     Route: 058
     Dates: start: 201502, end: 20150728
  5. PREDNISONE. [Suspect]
     Active Substance: PREDNISONE
     Indication: OSTEOMYELITIS
     Dosage: INCREASED TAPERED DOSAGE
     Route: 048
     Dates: start: 201507
  6. PENTASA [Concomitant]
     Active Substance: MESALAMINE
     Indication: CROHN^S DISEASE
  7. PROBIOTICS [Concomitant]
     Active Substance: PROBIOTICS NOS
     Indication: PRODUCT USED FOR UNKNOWN INDICATION
  8. FISH OIL [Concomitant]
     Active Substance: FISH OIL
     Indication: PRODUCT USED FOR UNKNOWN INDICATION
  9. PREDNISONE. [Suspect]
     Active Substance: PREDNISONE
     Indication: CROHN^S DISEASE
     Dosage: TAPERED DOSAGE
     Route: 048
     Dates: end: 201507
  10. MESALAMINE. [Concomitant]
     Active Substance: MESALAMINE
     Indication: PRODUCT USED FOR UNKNOWN INDICATION
     Dosage: FOUR TIMES DAILY

REACTIONS (16)
  - Tendon rupture [Not Recovered/Not Resolved]
  - Anxiety [Not Recovered/Not Resolved]
  - Drug ineffective [Not Recovered/Not Resolved]
  - Foot deformity [Not Recovered/Not Resolved]
  - Osteomyelitis [Recovered/Resolved]
  - Osteomyelitis [Recovered/Resolved with Sequelae]
  - Contusion [Recovered/Resolved]
  - Rectal haemorrhage [Not Recovered/Not Resolved]
  - Pain in extremity [Recovered/Resolved]
  - Localised infection [Recovered/Resolved]
  - Foot fracture [Unknown]
  - Arthralgia [Not Recovered/Not Resolved]
  - Muscle disorder [Not Recovered/Not Resolved]
  - Pain in extremity [Unknown]
  - Gait disturbance [Not Recovered/Not Resolved]
  - Tendon laxity [Not Recovered/Not Resolved]

NARRATIVE: CASE EVENT DATE: 2015
